FAERS Safety Report 5867800-2 (Version None)
Quarter: 2008Q3

REPORT INFORMATION
  Report Type: 
  Country: None (occurrence: None)
  Receive Date: 20080902
  Receipt Date: 20080825
  Transmission Date: 20090109
  Serious: Yes (Hospitalization)
  Sender: FDA-Public Use
  Company Number: CA-PFIZER INC-2006026024

PATIENT
  Sex: Male
  Weight: 80 kg

DRUGS (5)
  1. SU-011,248 [Suspect]
     Indication: RENAL CELL CARCINOMA
     Route: 048
     Dates: start: 20060208, end: 20060216
  2. SU-011,248 [Suspect]
     Route: 048
  3. TYLENOL (CAPLET) [Concomitant]
     Route: 048
  4. CLODRONATE DISODIUM [Concomitant]
     Route: 048
  5. GAVISCON [Concomitant]
     Route: 048

REACTIONS (3)
  - ATRIAL FIBRILLATION [None]
  - ATRIAL FLUTTER [None]
  - PLEURITIC PAIN [None]
